FAERS Safety Report 6903869-1 (Version None)
Quarter: 2010Q3

REPORT INFORMATION
  Report Type: 
  Country: None (occurrence: None)
  Receive Date: 20100804
  Receipt Date: 20090105
  Transmission Date: 20110219
  Serious: No
  Sender: FDA-Public Use
  Company Number: US-PFIZER INC-2009152449

PATIENT
  Sex: Female

DRUGS (2)
  1. LYRICA [Suspect]
     Indication: FIBROMYALGIA
     Dosage: 50 MG, 3X/DAY
     Dates: start: 20080101, end: 20081201
  2. HALCION [Suspect]
     Indication: INSOMNIA
     Dosage: UNK

REACTIONS (2)
  - UNEVALUABLE EVENT [None]
  - VISION BLURRED [None]
